FAERS Safety Report 7216246-3 (Version None)
Quarter: 2011Q1

REPORT INFORMATION
  Report Type: 
  Country: None (occurrence: None)
  Receive Date: 20110107
  Receipt Date: 20110104
  Transmission Date: 20110831
  Serious: Yes (Other)
  Sender: FDA-Public Use
  Company Number: BR-PFIZER INC-2011001378

PATIENT
  Sex: Female
  Weight: 60 kg

DRUGS (4)
  1. FRONTAL [Suspect]
     Indication: INSOMNIA
     Dosage: 2 MG, 3X/DAY
     Route: 048
     Dates: start: 20100815
  2. VALDOXAN [Concomitant]
     Dosage: UNK
  3. FRONTAL [Suspect]
     Indication: DEPRESSION
  4. LIORAM [Concomitant]
     Dosage: UNK

REACTIONS (15)
  - EAR PAIN [None]
  - BEDRIDDEN [None]
  - PAIN [None]
  - INSOMNIA [None]
  - HEADACHE [None]
  - WEIGHT INCREASED [None]
  - SWELLING [None]
  - VISUAL ACUITY REDUCED [None]
  - PARAESTHESIA MUCOSAL [None]
  - INFLUENZA [None]
  - MUSCULOSKELETAL STIFFNESS [None]
  - VISION BLURRED [None]
  - BACK PAIN [None]
  - GAIT DISTURBANCE [None]
  - SPINAL DISORDER [None]
